FAERS Safety Report 5583030-6 (Version None)
Quarter: 2008Q1

REPORT INFORMATION
  Report Type: 
  Country: None (occurrence: None)
  Receive Date: 20080107
  Receipt Date: 20080102
  Transmission Date: 20080703
  Serious: Yes (Life-Threatening, Hospitalization, Disabling, Other)
  Sender: FDA-Public Use
  Company Number: A0688244A

PATIENT
  Age: 19 Year
  Sex: Female
  Weight: 75.9 kg

DRUGS (2)
  1. LAMICTAL [Suspect]
     Indication: MAJOR DEPRESSION
     Dosage: 150MG PER DAY
     Route: 048
     Dates: start: 20060601, end: 20071004
  2. PROZAC [Concomitant]
     Dosage: 10MG PER DAY
     Route: 048
     Dates: start: 20070501, end: 20070820

REACTIONS (16)
  - AGITATION [None]
  - DEPRESSED MOOD [None]
  - DEPRESSION [None]
  - DISTURBANCE IN ATTENTION [None]
  - DRUG INEFFECTIVE [None]
  - EDUCATIONAL PROBLEM [None]
  - INTENTIONAL OVERDOSE [None]
  - IRRITABILITY [None]
  - MOOD SWINGS [None]
  - SELF ESTEEM DECREASED [None]
  - SLEEP DISORDER [None]
  - SOCIAL PHOBIA [None]
  - SUICIDAL IDEATION [None]
  - SUICIDE ATTEMPT [None]
  - UNDERDOSE [None]
  - WEIGHT INCREASED [None]
